FAERS Safety Report 7811548-1 (Version None)
Quarter: 2011Q4

REPORT INFORMATION
  Report Type: 
  Country: None (occurrence: None)
  Receive Date: 20111013
  Receipt Date: 20111006
  Transmission Date: 20120403
  Serious: Yes (Hospitalization, Other)
  Sender: FDA-Public Use
  Company Number: US-PFIZER INC-2011208503

PATIENT
  Sex: Female
  Weight: 64.399 kg

DRUGS (15)
  1. ALBUTEROL [Concomitant]
     Dosage: NEBULIZER TREATMENTS
     Route: 055
  2. MIRTAZAPINE [Concomitant]
  3. PREDNISONE [Concomitant]
  4. ADVAIR DISKUS 100/50 [Concomitant]
     Dosage: 500/50, DAILY
  5. PANTOPRAZOLE [Concomitant]
  6. SPIRIVA [Concomitant]
     Dosage: 18 UG, 1X/DAY
  7. GLASSIA [Suspect]
     Indication: ALPHA-1 ANTI-TRYPSIN DEFICIENCY
     Dosage: WEEKLY
     Route: 042
     Dates: start: 20110401
  8. VENTOLIN [Concomitant]
     Dosage: BY INHALER
     Route: 055
  9. LORAZEPAM [Concomitant]
  10. CYCLOBENZAPRINE [Concomitant]
  11. OXYGEN [Concomitant]
     Dosage: 3 L/MIN
  12. ALPRAZOLAM [Concomitant]
  13. CHANTIX [Suspect]
     Indication: SMOKING CESSATION THERAPY
     Dosage: 1 MG, 2X/DAY
  14. DILTIAZEM [Concomitant]
     Dosage: DAILY
  15. DIGOXIN [Concomitant]

REACTIONS (8)
  - CARDIAC ENZYMES INCREASED [None]
  - CARDIAC DISORDER [None]
  - SWELLING [None]
  - OEDEMA [None]
  - CHRONIC OBSTRUCTIVE PULMONARY DISEASE [None]
  - WEIGHT INCREASED [None]
  - PNEUMONIA [None]
  - COR PULMONALE [None]
